FAERS Safety Report 22169162 (Version 2)
Quarter: 2023Q2

REPORT INFORMATION
  Report Type: Spontaneous
  Country: DE (occurrence: DE)
  Receive Date: 20230404
  Receipt Date: 20230420
  Transmission Date: 20230722
  Serious: Yes (Death, Life-Threatening, Hospitalization, Other)
  Sender: FDA-Public Use
  Company Number: DE-BoehringerIngelheim-2023-BI-229078

PATIENT
  Age: 60 Year
  Sex: Male

DRUGS (15)
  1. JARDIANCE [Suspect]
     Active Substance: EMPAGLIFLOZIN
     Indication: Type 2 diabetes mellitus
     Dosage: 1-0-0-0
     Route: 048
     Dates: start: 202002
  2. GLUCOPHAGE [Concomitant]
     Active Substance: METFORMIN HYDROCHLORIDE
     Indication: Product used for unknown indication
  3. Glargin [Concomitant]
     Indication: Type 2 diabetes mellitus
     Dosage: BEFORE 2018
     Route: 058
  4. ATACAND [Concomitant]
     Active Substance: CANDESARTAN CILEXETIL
     Indication: Hypertension
     Route: 048
  5. ATORVASTATIN CALCIUM [Concomitant]
     Active Substance: ATORVASTATIN CALCIUM
     Indication: Hypercholesterolaemia
     Route: 048
  6. ATORVASTATIN CALCIUM [Concomitant]
     Active Substance: ATORVASTATIN CALCIUM
     Dosage: 0-0-1-0
     Route: 048
     Dates: start: 202006
  7. Fiasp 100 Units/ml [Concomitant]
     Indication: Type 2 diabetes mellitus
     Route: 058
  8. IBUPROFEN SODIUM [Concomitant]
     Active Substance: IBUPROFEN SODIUM
     Indication: Cervicobrachial syndrome
     Route: 048
  9. IBUPROFEN SODIUM [Concomitant]
     Active Substance: IBUPROFEN SODIUM
     Indication: Spinal disorder
  10. IBUPROFEN SODIUM [Concomitant]
     Active Substance: IBUPROFEN SODIUM
     Indication: Back pain
  11. PANTOZOL [Concomitant]
     Active Substance: PANTOPRAZOLE SODIUM
     Indication: Ulcer
     Route: 048
  12. Flex Touch [Concomitant]
     Indication: Type 2 diabetes mellitus
     Dosage: AFTER SCHEME
     Route: 058
  13. Pantopra-Q [Concomitant]
     Indication: Product used for unknown indication
  14. CANDESARTAN [Concomitant]
     Active Substance: CANDESARTAN
     Indication: Product used for unknown indication
     Dosage: STARTED BEFORE 2018
     Dates: start: 2018
  15. IBUPROFEN [Concomitant]
     Active Substance: IBUPROFEN
     Indication: Product used for unknown indication

REACTIONS (16)
  - Non-small cell lung cancer [Fatal]
  - Metastases to bone [Fatal]
  - Metastases to liver [Fatal]
  - Metastases to spine [Fatal]
  - Neuroendocrine carcinoma [Fatal]
  - Fournier^s gangrene [Recovered/Resolved with Sequelae]
  - Rectal perforation [Unknown]
  - Urinary tract infection [Unknown]
  - Proteus infection [Unknown]
  - Chest pain [Unknown]
  - Diarrhoea [Unknown]
  - Neuroendocrine tumour [Unknown]
  - Bladder diverticulum [Unknown]
  - Lymphadenopathy [Unknown]
  - Rectourethral fistula [Unknown]
  - Infection [Unknown]

NARRATIVE: CASE EVENT DATE: 20200709
